FAERS Safety Report 9467611 (Version 1)
Quarter: 2013Q3

REPORT INFORMATION
  Report Type: Spontaneous
  Country: US (occurrence: None)
  Receive Date: 20130819
  Receipt Date: 20130819
  Transmission Date: 20140515
  Serious: Yes (Disabling)
  Sender: FDA-Public Use
  Company Number: None

PATIENT
  Age: 20 Year
  Sex: Female
  Weight: 58.97 kg

DRUGS (1)
  1. CREST PRO-HEALTH CLINICAL GUM PROTECTION [Suspect]
     Indication: DENTAL CARE
     Dates: start: 20130802, end: 20130802

REACTIONS (3)
  - Oral mucosal exfoliation [None]
  - Tongue ulceration [None]
  - Gingival ulceration [None]
